FAERS Safety Report 23435182 (Version 4)
Quarter: 2024Q3

REPORT INFORMATION
  Report Type: Report from Study
  Country: NL (occurrence: NL)
  Receive Date: 20240123
  Receipt Date: 20240712
  Transmission Date: 20241017
  Serious: Yes (Hospitalization, Disabling)
  Sender: VERITY PHARMACEUTICALS
  Company Number: NL-VER-202400010

PATIENT
  Age: 75 Year
  Sex: Male
  Weight: 68 kg

DRUGS (12)
  1. TRIPTORELIN [Suspect]
     Active Substance: TRIPTORELIN
     Indication: Prostate cancer
     Dosage: LEFT ABDOMINAL REGION (22.5 MG,6 M); POWDER FOR PROLONGED-RELEASE SUSPENSION FOR INJECT
     Route: 058
     Dates: start: 20230718, end: 20230718
  2. TRIPTORELIN [Suspect]
     Active Substance: TRIPTORELIN
     Indication: Prostate cancer
     Dosage: RIGHT ABDOMINAL REGION (22.5 MG,6 M); POWDER FOR PROLONGED-RELEASE SUSPENSION FOR INJECT
     Route: 058
     Dates: start: 20230201, end: 20230201
  3. ACETAMINOPHEN [Concomitant]
     Active Substance: ACETAMINOPHEN
     Indication: Pain
     Dosage: TID (1000 MG,8 HR)
     Route: 048
     Dates: start: 20231105
  4. DIPYRIDAMOLE [Concomitant]
     Active Substance: DIPYRIDAMOLE
     Indication: Pain
     Dosage: 200 MG,1 D
     Route: 048
     Dates: start: 20231010
  5. ELIQUIS [Concomitant]
     Active Substance: APIXABAN
     Indication: Pain
     Dosage: ONCE (10 MG)
     Route: 048
     Dates: start: 20231005, end: 20231005
  6. ASPIRIN CALCIUM [Concomitant]
     Active Substance: ASPIRIN CALCIUM
     Indication: Cerebral ischaemia
     Dosage: 80 MG,1 D
     Route: 048
     Dates: start: 20230914
  7. CLOPIDOGREL [Concomitant]
     Active Substance: CLOPIDOGREL BISULFATE
     Indication: Cerebral ischaemia
     Dosage: 75 MG,1 D
     Route: 048
     Dates: start: 20230914, end: 20231006
  8. SIMVASTATIN [Concomitant]
     Active Substance: SIMVASTATIN
     Indication: Cerebral ischaemia
     Dosage: (40 MG,1 D)
     Route: 048
     Dates: start: 20230914, end: 20230929
  9. MIRABEGRON [Concomitant]
     Active Substance: MIRABEGRON
     Indication: Prophylaxis
     Dosage: 50 MG,1 D
     Route: 048
     Dates: start: 20221019, end: 20221207
  10. MICANOZOL CREME [Concomitant]
     Indication: Fungal infection
     Dosage: BID - TWICE PER DAY, OINTMENT ON A THE PLACE OF THE INFECTION (20 MG,12 HR)
     Route: 065
     Dates: start: 20221207
  11. ALLOPURINOL [Concomitant]
     Active Substance: ALLOPURINOL
     Indication: Gout
     Dosage: 100 MG,1 D
     Route: 048
     Dates: start: 20220201
  12. PANTHOPRAZOL [Concomitant]
     Indication: Gastritis
     Dosage: 40 MG,1 D
     Route: 048
     Dates: start: 20220518

REACTIONS (1)
  - Peroneal nerve injury [Not Recovered/Not Resolved]

NARRATIVE: CASE EVENT DATE: 20231104
